FAERS Safety Report 16137141 (Version 1)
Quarter: 2019Q2

REPORT INFORMATION
  Report Type: Other
  Country: GB (occurrence: GB)
  Receive Date: 20190401
  Receipt Date: 20190401
  Transmission Date: 20190711
  Serious: No
  Sender: FDA-Public Use
  Company Number: GB-LUPIN PHARMACEUTICALS INC.-2018-03283

PATIENT
  Age: 25 Year
  Sex: Female
  Weight: 57 kg

DRUGS (3)
  1. MIRTAZAPINE. [Concomitant]
     Active Substance: MIRTAZAPINE
     Indication: DEPRESSED MOOD
     Dosage: TAKE ONE EACH NIGHT FOR LOW MOOD
     Route: 065
     Dates: start: 20180131, end: 20180228
  2. SERTRALINE [Suspect]
     Active Substance: SERTRALINE HYDROCHLORIDE
     Indication: PRODUCT USED FOR UNKNOWN INDICATION
     Dosage: UNK
     Route: 065
     Dates: start: 20180404
  3. HYDROCORTISONE. [Concomitant]
     Active Substance: HYDROCORTISONE
     Indication: ILL-DEFINED DISORDER
     Dosage: APPLY TWICE DAILY
     Route: 065
     Dates: start: 20180131, end: 20180228

REACTIONS (2)
  - Alopecia [Not Recovered/Not Resolved]
  - Dermatitis allergic [Not Recovered/Not Resolved]

NARRATIVE: CASE EVENT DATE: 20180404
